FAERS Safety Report 5815339-2 (Version None)
Quarter: 2008Q3

REPORT INFORMATION
  Report Type: 
  Country: None (occurrence: None)
  Receive Date: 20080718
  Receipt Date: 20080707
  Transmission Date: 20090109
  Serious: Yes (Other)
  Sender: FDA-Public Use
  Company Number: US-ELI_LILLY_AND_COMPANY-US200806002293

PATIENT
  Sex: Female
  Weight: 67.574 kg

DRUGS (8)
  1. CYMBALTA [Suspect]
     Indication: DEPRESSION
     Dosage: 1 D/F, UNK
     Dates: start: 20070101, end: 20080301
  2. CYMBALTA [Suspect]
     Dosage: 60 MG, UNK
  3. CYMBALTA [Suspect]
     Dosage: 30 MG, EACH EVENING
     Dates: start: 20080513
  4. REBIF [Concomitant]
     Indication: MULTIPLE SCLEROSIS
     Dosage: 44 UG, 3/W
     Route: 058
     Dates: start: 20070723, end: 20080301
  5. CELEBREX [Concomitant]
     Dates: start: 20030101
  6. ZANAFLEX [Concomitant]
     Indication: BLOOD PRESSURE INCREASED
  7. ULTRAM [Concomitant]
     Indication: PAIN
     Dosage: 100 MG, DAILY (1/D)
  8. AMBIEN [Concomitant]
     Indication: DEPRESSION
     Dosage: UNK, UNK
     Dates: start: 20070101, end: 20080301

REACTIONS (14)
  - CONSTIPATION [None]
  - DECREASED APPETITE [None]
  - DEPRESSION [None]
  - EXOSTOSIS [None]
  - FATIGUE [None]
  - INFLUENZA LIKE ILLNESS [None]
  - INSOMNIA [None]
  - MENOPAUSE [None]
  - MULTIPLE SCLEROSIS RELAPSE [None]
  - RASH [None]
  - SUICIDAL IDEATION [None]
  - SUICIDE ATTEMPT [None]
  - VISUAL IMPAIRMENT [None]
  - WEIGHT INCREASED [None]
